FAERS Safety Report 9773731 (Version 2)
Quarter: 2013Q4

REPORT INFORMATION
  Report Type: Spontaneous
  Country: US (occurrence: US)
  Receive Date: 20131219
  Receipt Date: 20131219
  Transmission Date: 20140711
  Serious: Yes (Hospitalization, Other)
  Sender: FDA-Public Use
  Company Number: CHPA2012US015652

PATIENT
  Age: 87 Year
  Sex: Female

DRUGS (1)
  1. VOLTAREN GEL [Suspect]
     Indication: OSTEOARTHRITIS
     Dosage: A LITTLE BIT, 2-3 TIMES PER DAY
     Route: 061
     Dates: start: 2010, end: 201309

REACTIONS (6)
  - Cerebrovascular accident [Recovered/Resolved]
  - Visual impairment [Recovered/Resolved]
  - Rash macular [Not Recovered/Not Resolved]
  - Pruritus [Unknown]
  - Wrong technique in drug usage process [Unknown]
  - Underdose [Unknown]
